FAERS Safety Report 7389508-7 (Version None)
Quarter: 2011Q2

REPORT INFORMATION
  Report Type: 
  Country: None (occurrence: None)
  Receive Date: 20110401
  Receipt Date: 20110317
  Transmission Date: 20111010
  Serious: Yes (Other)
  Sender: FDA-Public Use
  Company Number: PHHY2011CA04430

PATIENT
  Sex: Female

DRUGS (1)
  1. ACLASTA [Suspect]
     Indication: OSTEOPOROSIS
     Dosage: UNK
     Route: 042
     Dates: start: 20110106

REACTIONS (10)
  - WEIGHT DECREASED [None]
  - INFLUENZA LIKE ILLNESS [None]
  - DYSPNOEA [None]
  - APHAGIA [None]
  - CHILLS [None]
  - OROPHARYNGEAL PAIN [None]
  - COUGH [None]
  - BONE PAIN [None]
  - VOMITING [None]
  - PYREXIA [None]
